FAERS Safety Report 14110728 (Version 1)
Quarter: 2017Q4

REPORT INFORMATION
  Report Type: Spontaneous
  Country: US (occurrence: None)
  Receive Date: 20171020
  Receipt Date: 20171020
  Transmission Date: 20180321
  Serious: Yes (Hospitalization)
  Sender: FDA-Public Use
  Company Number: None

PATIENT
  Age: 50 Year
  Sex: Female

DRUGS (18)
  1. LACTULOSE. [Concomitant]
     Active Substance: LACTULOSE
  2. GENERLAC [Concomitant]
     Active Substance: LACTULOSE
  3. METFORMIN [Concomitant]
     Active Substance: METFORMIN HYDROCHLORIDE
  4. SPIRONOLACT [Concomitant]
     Active Substance: SPIRONOLACTONE
  5. CITALOPRAM [Concomitant]
     Active Substance: CITALOPRAM HYDROBROMIDE
  6. NICOTINE. [Concomitant]
     Active Substance: NICOTINE
  7. FUROSEMIDE. [Concomitant]
     Active Substance: FUROSEMIDE
  8. ALDACTONE [Concomitant]
     Active Substance: SPIRONOLACTONE
  9. GLYBURIDE. [Concomitant]
     Active Substance: GLYBURIDE
  10. XIFAXAN [Suspect]
     Active Substance: RIFAXIMIN
     Indication: HEPATITIS
     Route: 048
     Dates: start: 20170509
  11. HUMALOG [Concomitant]
     Active Substance: INSULIN LISPRO
  12. SERTRALINE [Concomitant]
     Active Substance: SERTRALINE HYDROCHLORIDE
  13. JANUVIA [Concomitant]
     Active Substance: SITAGLIPTIN PHOSPHATE
  14. LAMOTRIGINE. [Concomitant]
     Active Substance: LAMOTRIGINE
  15. FUROSEMIDE. [Concomitant]
     Active Substance: FUROSEMIDE
  16. RISPERIDONE. [Concomitant]
     Active Substance: RISPERIDONE
  17. CARVEDILOL. [Concomitant]
     Active Substance: CARVEDILOL
  18. LANTUS [Concomitant]
     Active Substance: INSULIN GLARGINE

REACTIONS (2)
  - Hypersomnia [None]
  - Abdominal pain [None]

NARRATIVE: CASE EVENT DATE: 2017
